FAERS Safety Report 10779924 (Version 1)
Quarter: 2015Q1

REPORT INFORMATION
  Report Type: Spontaneous
  Country: US (occurrence: US)
  Receive Date: 20150210
  Receipt Date: 20150210
  Transmission Date: 20150721
  Serious: No
  Sender: FDA-Public Use
  Company Number: US-GLAXOSMITHKLINE-A1041916A

PATIENT

DRUGS (15)
  1. PROAIR HFA [Concomitant]
     Active Substance: ALBUTEROL SULFATE
  2. PLAVIX [Concomitant]
     Active Substance: CLOPIDOGREL BISULFATE
  3. ASMANEX [Concomitant]
     Active Substance: MOMETASONE FUROATE
  4. SIMVASTATIN. [Concomitant]
     Active Substance: SIMVASTATIN
  5. ICAPS [Concomitant]
     Active Substance: MINERALS\VITAMINS
  6. EYE DROPS [Concomitant]
     Active Substance: TETRAHYDROZOLINE HYDROCHLORIDE
  7. SYMBICORT [Suspect]
     Active Substance: BUDESONIDE\FORMOTEROL FUMARATE DIHYDRATE
  8. ISOSORBIDE [Concomitant]
     Active Substance: ISOSORBIDE
  9. EYE WASH [Concomitant]
     Active Substance: WATER
  10. VITAMIN D3 [Concomitant]
     Active Substance: CHOLECALCIFEROL
  11. SEREVENT [Suspect]
     Active Substance: SALMETEROL XINAFOATE
     Indication: ASTHMA
     Route: 055
     Dates: start: 20130905
  12. ASPIRIN. [Concomitant]
     Active Substance: ASPIRIN
  13. GALANTAMINE [Concomitant]
     Active Substance: GALANTAMINE
  14. MIDODRINE [Concomitant]
     Active Substance: MIDODRINE
  15. COUGH MEDICATION [Concomitant]
     Active Substance: UNSPECIFIED INGREDIENT

REACTIONS (11)
  - Fatigue [Not Recovered/Not Resolved]
  - Headache [Not Recovered/Not Resolved]
  - Underdose [Unknown]
  - Nasal congestion [Not Recovered/Not Resolved]
  - Throat irritation [Not Recovered/Not Resolved]
  - Memory impairment [Not Recovered/Not Resolved]
  - Back pain [Not Recovered/Not Resolved]
  - Productive cough [Not Recovered/Not Resolved]
  - Dysphonia [Not Recovered/Not Resolved]
  - Cough [Not Recovered/Not Resolved]
  - Visual acuity reduced [Not Recovered/Not Resolved]
